FAERS Safety Report 8806424 (Version 1)
Quarter: 2012Q4

REPORT INFORMATION
  Report Type: Spontaneous
  Country: GB (occurrence: None)
  Receive Date: 20120919
  Receipt Date: 20120919
  Transmission Date: 20130627
  Serious: Yes (Other)
  Sender: FDA-Public Use
  Company Number: 2012AP002881

PATIENT
  Sex: Male

DRUGS (2)
  1. OMEPRAZOLE (OMEPRAZOLE) [Suspect]
     Indication: DRUG USE FOR UNKNOWN INDICATION
  2. MADOPAR [Suspect]

REACTIONS (4)
  - Drug effect decreased [None]
  - Drug interaction [None]
  - Reflux gastritis [None]
  - Cardiac disorder [None]
